FAERS Safety Report 23294961 (Version 1)
Quarter: 2023Q4

REPORT INFORMATION
  Report Type: Spontaneous
  Country: US (occurrence: US)
  Receive Date: 20231213
  Receipt Date: 20231213
  Transmission Date: 20240110
  Serious: No
  Sender: FDA-Public Use
  Company Number: US-ABBVIE-5536280

PATIENT
  Sex: Female

DRUGS (1)
  1. IMBRUVICA [Suspect]
     Active Substance: IBRUTINIB
     Indication: Product used for unknown indication
     Dosage: FORM STRENGTH: 140 MILLIGRAM, TAKE 2 CAPSULES BY MOUTH ONCE DAILY. CAPSULES SHOULD BE?TAKEN WITH ...
     Route: 048

REACTIONS (1)
  - Toothache [Recovering/Resolving]

NARRATIVE: CASE EVENT DATE: 20230101
